FAERS Safety Report 15508504 (Version 1)
Quarter: 2018Q4

REPORT INFORMATION
  Report Type: Spontaneous
  Country: US (occurrence: US)
  Receive Date: 20181016
  Receipt Date: 20181016
  Transmission Date: 20190205
  Serious: No
  Sender: FDA-Public Use
  Company Number: US-ENDO PHARMACEUTICALS INC-2018-019445

PATIENT
  Age: 71 Year
  Sex: Male
  Weight: 106.5 kg

DRUGS (6)
  1. VANTAS [Suspect]
     Active Substance: HISTRELIN ACETATE
     Dosage: 50 MG, ONCE A YEAR
     Route: 058
     Dates: start: 20160722, end: 201709
  2. VANTAS [Suspect]
     Active Substance: HISTRELIN ACETATE
     Dosage: 50 MG, ONCE A YEAR
     Route: 058
     Dates: start: 2013
  3. VANTAS [Suspect]
     Active Substance: HISTRELIN ACETATE
     Dosage: 50 MG, ONCE A YEAR
     Route: 058
     Dates: start: 201206
  4. VANTAS [Suspect]
     Active Substance: HISTRELIN ACETATE
     Dosage: 50 MG, ONCE A YEAR
     Route: 058
     Dates: start: 201406
  5. VANTAS [Suspect]
     Active Substance: HISTRELIN ACETATE
     Dosage: 50 MG, ONCE A YEAR
     Route: 058
     Dates: start: 201507
  6. VANTAS [Suspect]
     Active Substance: HISTRELIN ACETATE
     Indication: PROSTATE CANCER
     Dosage: 50 MG, ONCE A YEAR
     Route: 065

REACTIONS (3)
  - Treatment noncompliance [Unknown]
  - Product dose omission [Unknown]
  - Incorrect product administration duration [Unknown]

NARRATIVE: CASE EVENT DATE: 20170803
